FAERS Safety Report 6124857-1 (Version None)
Quarter: 2009Q1

REPORT INFORMATION
  Report Type: 
  Country: None (occurrence: None)
  Receive Date: 20090319
  Receipt Date: 20090309
  Transmission Date: 20090719
  Serious: Yes (Other)
  Sender: FDA-Public Use
  Company Number: AU-PFIZER INC-2009175368

PATIENT

DRUGS (6)
  1. LIPITOR [Suspect]
     Indication: BLOOD CHOLESTEROL
     Dosage: 10 MG, UNK
     Route: 048
     Dates: end: 20071101
  2. CADUET [Suspect]
     Indication: HYPERTENSION
     Dosage: 5/20
     Route: 048
  3. CADUET [Suspect]
     Indication: BLOOD CHOLESTEROL
  4. PERINDOPRIL ERBUMINE [Concomitant]
  5. COVERSYL PLUS [Concomitant]
     Route: 048
     Dates: start: 19980101
  6. PLENDIL [Concomitant]
     Dates: start: 19880101, end: 20071101

REACTIONS (1)
  - BILE DUCT CANCER [None]
